FAERS Safety Report 4268807-1 (Version None)
Quarter: 2004Q1

REPORT INFORMATION
  Report Type: 
  Country: None (occurrence: None)
  Receive Date: 20040112
  Receipt Date: 20031223
  Transmission Date: 20041129
  Serious: Yes (Hospitalization, Other)
  Sender: FDA-Public Use
  Company Number: WAES 0312USA02347

PATIENT
  Sex: Male

DRUGS (5)
  1. ASPIRIN [Concomitant]
     Indication: CORONARY ARTERY SURGERY
     Route: 048
  2. CONCOR [Concomitant]
     Route: 048
  3. DILTIAZEM [Concomitant]
     Indication: CORONARY ARTERY SURGERY
     Route: 048
  4. ZOCOR [Suspect]
     Indication: HYPERCHOLESTEROLAEMIA
     Route: 048
     Dates: start: 19981201, end: 20021201
  5. ZOCOR [Suspect]
     Route: 048
     Dates: start: 20021201, end: 20031219

REACTIONS (3)
  - BLOOD CREATINE PHOSPHOKINASE INCREASED [None]
  - MYALGIA [None]
  - NAUSEA [None]
